FAERS Safety Report 6111801-6 (Version None)
Quarter: 2009Q1

REPORT INFORMATION
  Report Type: 
  Country: None (occurrence: None)
  Receive Date: 20090311
  Receipt Date: 20090303
  Transmission Date: 20090719
  Serious: Yes (Hospitalization)
  Sender: FDA-Public Use
  Company Number: CH-BRISTOL-MYERS SQUIBB COMPANY-14493993

PATIENT
  Age: 61 Year
  Sex: Male
  Weight: 100 kg

DRUGS (6)
  1. ERBITUX [Suspect]
     Indication: RECTAL CANCER
     Route: 042
     Dates: start: 20090126
  2. ERBITUX [Suspect]
     Indication: METASTASES TO LUNG
     Route: 042
     Dates: start: 20090126
  3. CAMPTOSAR [Suspect]
     Indication: RECTAL CANCER
     Route: 042
     Dates: start: 20090126
  4. CAMPTOSAR [Suspect]
     Indication: METASTASES TO LUNG
     Route: 042
     Dates: start: 20090126
  5. FLUOROURACIL [Suspect]
     Indication: RECTAL CANCER
     Route: 042
     Dates: start: 20090126
  6. FLUOROURACIL [Suspect]
     Indication: METASTASES TO LUNG
     Route: 042
     Dates: start: 20090126

REACTIONS (1)
  - ARTERIAL OCCLUSIVE DISEASE [None]
